FAERS Safety Report 8439846-1 (Version None)
Quarter: 2012Q2

REPORT INFORMATION
  Report Type: 
  Country: None (occurrence: None)
  Receive Date: 20120323
  Receipt Date: 20110609
  Transmission Date: 20120825
  Serious: Yes (Hospitalization)
  Sender: FDA-Public Use
  Company Number: 163-21880-11061554

PATIENT
  Age: 72 Year
  Sex: Female

DRUGS (7)
  1. NORVASC [Concomitant]
  2. VENTOLIN [Concomitant]
  3. LIPITOR [Concomitant]
  4. TRAMADOL HCL [Concomitant]
  5. REVLIMID [Suspect]
     Indication: MULTIPLE MYELOMA
     Dosage: 25 MG, 1 IN 1 D, PO, 15 MG, 1 IN 1 D, PO
     Route: 048
     Dates: start: 20101101
  6. REVLIMID [Suspect]
     Indication: MULTIPLE MYELOMA
     Dosage: 25 MG, 1 IN 1 D, PO, 15 MG, 1 IN 1 D, PO
     Route: 048
     Dates: start: 20110201
  7. ASPIRIN [Concomitant]

REACTIONS (1)
  - CHEST DISCOMFORT [None]
